FAERS Safety Report 6817008-9 (Version None)
Quarter: 2010Q3

REPORT INFORMATION
  Report Type: 
  Country: None (occurrence: None)
  Receive Date: 20100706
  Receipt Date: 20100628
  Transmission Date: 20110219
  Serious: Yes (Death)
  Sender: FDA-Public Use
  Company Number: JP-ABBOTT-10P-087-0651675-00

PATIENT
  Age: 80 Year
  Sex: Male
  Weight: 71 kg

DRUGS (8)
  1. LEUPROLIDE ACETATE [Suspect]
     Indication: PROSTATE CANCER STAGE IV
     Route: 058
     Dates: start: 20080627, end: 20100212
  2. BICALUTAMIDE [Concomitant]
     Indication: PROSTATE CANCER STAGE IV
     Route: 048
     Dates: start: 20081107, end: 20090605
  3. FLUTAMIDE [Concomitant]
     Indication: PROSTATE CANCER STAGE IV
     Route: 048
     Dates: end: 20081106
  4. URALYT-U [Concomitant]
     Indication: HYPERURICAEMIA
     Route: 048
     Dates: end: 20100119
  5. ESTRAMUSTINE PHOSPHATE SODIUM [Concomitant]
     Indication: PROSTATE CANCER STAGE IV
     Route: 048
     Dates: start: 20090703, end: 20091119
  6. ESTRAMUSTINE PHOSPHATE SODIUM [Concomitant]
     Route: 048
     Dates: start: 20091120, end: 20100511
  7. HYPEN [Concomitant]
     Indication: CANCER PAIN
     Route: 048
     Dates: start: 20100212, end: 20100513
  8. OXYCONTIN [Concomitant]
     Indication: CANCER PAIN
     Route: 048
     Dates: start: 20100430, end: 20100514

REACTIONS (4)
  - CACHEXIA [None]
  - CARDIAC ARREST [None]
  - PROSTATE CANCER [None]
  - RESPIRATORY ARREST [None]
